FAERS Safety Report 15499938 (Version 1)
Quarter: 2018Q4

REPORT INFORMATION
  Report Type: Spontaneous
  Country: US (occurrence: US)
  Receive Date: 20181015
  Receipt Date: 20181015
  Transmission Date: 20190205
  Serious: Yes (Other)
  Sender: FDA-Public Use
  Company Number: US-PFIZER INC-2018401927

PATIENT
  Age: 69 Year
  Sex: Male
  Weight: 70.3 kg

DRUGS (1)
  1. LYRICA [Suspect]
     Active Substance: PREGABALIN
     Indication: FIBROMYALGIA
     Dosage: 150 MG, 3X/DAY
     Route: 048
     Dates: start: 2008

REACTIONS (5)
  - Throat cancer [Not Recovered/Not Resolved]
  - Metastasis [Recovered/Resolved]
  - Body height decreased [Unknown]
  - Paraesthesia [Unknown]
  - Middle insomnia [Unknown]

NARRATIVE: CASE EVENT DATE: 201710
